FAERS Safety Report 25378590 (Version 2)
Quarter: 2025Q2

REPORT INFORMATION
  Report Type: Spontaneous
  Country: US (occurrence: US)
  Receive Date: 20250530
  Receipt Date: 20250604
  Transmission Date: 20250716
  Serious: Yes (Other)
  Sender: CHEPLAPHARM
  Company Number: US-CHEPLA-2025006631

PATIENT
  Age: 42 Year
  Sex: Female
  Weight: 96 kg

DRUGS (48)
  1. QUETIAPINE [Suspect]
     Active Substance: QUETIAPINE
     Indication: Product used for unknown indication
     Dates: start: 20250424
  2. REMODULIN [Suspect]
     Active Substance: TREPROSTINIL
     Indication: Sedation
     Route: 058
     Dates: start: 202201
  3. REMODULIN [Suspect]
     Active Substance: TREPROSTINIL
     Indication: Pulmonary arterial hypertension
     Route: 058
     Dates: start: 202201
  4. REMODULIN [Suspect]
     Active Substance: TREPROSTINIL
     Indication: Sedation
     Route: 058
     Dates: start: 202306
  5. REMODULIN [Suspect]
     Active Substance: TREPROSTINIL
     Indication: Pulmonary arterial hypertension
     Route: 058
     Dates: start: 202306
  6. TIZANIDINE [Suspect]
     Active Substance: TIZANIDINE
     Indication: Sedation
     Route: 048
     Dates: start: 20250424
  7. TIZANIDINE [Suspect]
     Active Substance: TIZANIDINE
     Indication: Product used for unknown indication
     Route: 048
     Dates: start: 20250424
  8. BACLOFEN [Suspect]
     Active Substance: BACLOFEN
     Indication: Product used for unknown indication
     Route: 048
     Dates: start: 20250424
  9. BACLOFEN [Suspect]
     Active Substance: BACLOFEN
     Indication: Sedation
     Route: 048
     Dates: start: 20250424
  10. VALIUM [Suspect]
     Active Substance: DIAZEPAM
     Indication: Sedation
     Dosage: DAILY DOSE: 5 MILLIGRAM
     Route: 048
     Dates: start: 20250424
  11. VALIUM [Suspect]
     Active Substance: DIAZEPAM
     Indication: Product used for unknown indication
     Dosage: DAILY DOSE: 5 MILLIGRAM
     Route: 048
     Dates: start: 20250424
  12. ELIQUIS [Concomitant]
     Active Substance: APIXABAN
  13. VITAMIN C [Concomitant]
     Active Substance: ASCORBIC ACID
  14. BUPRENORPHINE [Concomitant]
     Active Substance: BUPRENORPHINE
  15. DRISDOL [Concomitant]
     Active Substance: ERGOCALCIFEROL
  16. GUAIFENESIN [Concomitant]
     Active Substance: GUAIFENESIN
  17. ESCITALOPRAM [Concomitant]
     Active Substance: ESCITALOPRAM OXALATE
  18. INSULIN GLARGINE-YFGN [Concomitant]
     Active Substance: INSULIN GLARGINE-YFGN
  19. INSULIN LISPRO [Concomitant]
     Active Substance: INSULIN LISPRO
  20. LEVOTHYROXINE SODIUM [Concomitant]
     Active Substance: LEVOTHYROXINE SODIUM
  21. MACITENTAN [Concomitant]
     Active Substance: MACITENTAN
  22. MONTELUKAST [Concomitant]
     Active Substance: MONTELUKAST
  23. PANTOPRAZOLE [Concomitant]
     Active Substance: PANTOPRAZOLE
  24. PREGABALIN [Concomitant]
     Active Substance: PREGABALIN
  25. XIFAXAN [Concomitant]
     Active Substance: RIFAXIMIN
  26. ROSUVASTATIN [Concomitant]
     Active Substance: ROSUVASTATIN
  27. DUONEB [Concomitant]
     Active Substance: ALBUTEROL SULFATE\IPRATROPIUM BROMIDE
  28. SODIUM CHLORIDE [Concomitant]
     Active Substance: SODIUM CHLORIDE
  29. SODIUM FERRIC GLUCONATE COMPLEX [Concomitant]
     Active Substance: SODIUM FERRIC GLUCONATE COMPLEX
  30. SPIRONOLACTONE [Concomitant]
     Active Substance: SPIRONOLACTONE
  31. TADALAFIL [Concomitant]
     Active Substance: TADALAFIL
  32. ACETAMINOPHEN [Concomitant]
     Active Substance: ACETAMINOPHEN
  33. Alumina/magnesium/simethicone [Concomitant]
  34. Dulcolax [Concomitant]
  35. ATROPINE\DIPHENOXYLATE [Concomitant]
     Active Substance: ATROPINE\DIPHENOXYLATE
  36. DOCUSATE SODIUM [Concomitant]
     Active Substance: DOCUSATE SODIUM
  37. SENNA [Concomitant]
     Active Substance: SENNOSIDES
  38. HYDROXYZINE HYDROCHLORIDE [Concomitant]
     Active Substance: HYDROXYZINE HYDROCHLORIDE
  39. MAGNESIUM SULFATE [Concomitant]
     Active Substance: MAGNESIUM SULFATE
  40. MIDODRINE HYDROCHLORIDE [Concomitant]
     Active Substance: MIDODRINE HYDROCHLORIDE
  41. OLANZAPINE [Concomitant]
     Active Substance: OLANZAPINE
  42. ONDANSETRON [Concomitant]
     Active Substance: ONDANSETRON
  43. OXYCODONE [Concomitant]
     Active Substance: OXYCODONE
  44. POTASSIUM CHLORIDE [Concomitant]
     Active Substance: POTASSIUM CHLORIDE
  45. PROMETHAZINE [Concomitant]
     Active Substance: PROMETHAZINE HYDROCHLORIDE
  46. SODIUM PHOSPHATE [Concomitant]
     Active Substance: SODIUM PHOSPHATE
  47. WINREVAIR [Concomitant]
     Active Substance: SOTATERCEPT-CSRK
  48. NOREPINEPHRINE [Concomitant]
     Active Substance: NOREPINEPHRINE
     Route: 042

REACTIONS (26)
  - Deep vein thrombosis [Unknown]
  - Lung consolidation [Unknown]
  - Atelectasis [Unknown]
  - Hypokalaemia [Unknown]
  - Pneumonia [Unknown]
  - Peroneal nerve palsy [Unknown]
  - Somnolence [Unknown]
  - Hypotension [Unknown]
  - Asthenia [Not Recovered/Not Resolved]
  - Dyspepsia [Unknown]
  - Constipation [Unknown]
  - Breakthrough pain [Unknown]
  - Diarrhoea [Unknown]
  - Pruritus [Unknown]
  - Hypomagnesaemia [Unknown]
  - Agitation [Unknown]
  - Nausea [Unknown]
  - Vomiting [Unknown]
  - Limb discomfort [Unknown]
  - Dry mouth [Unknown]
  - Fatigue [Unknown]
  - Blood sodium decreased [Unknown]
  - Blood urea increased [Unknown]
  - Blood glucose increased [Unknown]
  - Paraesthesia [Unknown]
  - Off label use [Unknown]

NARRATIVE: CASE EVENT DATE: 20250324
